FAERS Safety Report 12627177 (Version 1)
Quarter: 2016Q3

REPORT INFORMATION
  Report Type: Report from Study
  Country: SE (occurrence: SE)
  Receive Date: 20160805
  Receipt Date: 20160805
  Transmission Date: 20161109
  Serious: Yes (Death)
  Sender: FDA-Public Use
  Company Number: SE-PFIZER INC-2016373062

PATIENT

DRUGS (4)
  1. THIOGUANINE [Suspect]
     Active Substance: THIOGUANINE
     Indication: ACUTE MYELOID LEUKAEMIA
     Dosage: 2 MG/KG, MONTHLY,ON DAYS 1-5
     Route: 048
  2. CYTARABINE. [Suspect]
     Active Substance: CYTARABINE
     Indication: ACUTE MYELOID LEUKAEMIA
     Dosage: 1 MG/KG, MONTHLY, ON DAYS 1-5
     Route: 058
  3. CYTARABINE. [Suspect]
     Active Substance: CYTARABINE
     Dosage: 1 MG/KG, MONTHLY, ON DAYS 1-5
     Route: 058
  4. DAUNORUBICIN [Suspect]
     Active Substance: DAUNORUBICIN
     Indication: ACUTE MYELOID LEUKAEMIA
     Dosage: 1.5 MG/KG, MONTHLY, ON DAY 1

REACTIONS (1)
  - Acute hepatic failure [Fatal]
